FAERS Safety Report 21148090 (Version 1)
Quarter: 2022Q3

REPORT INFORMATION
  Report Type: Spontaneous
  Country: JP (occurrence: JP)
  Receive Date: 20220729
  Receipt Date: 20220729
  Transmission Date: 20221027
  Serious: Yes (Hospitalization, Other)
  Sender: FDA-Public Use
  Company Number: JP-MEIJISEIKA-202203667_P_1

PATIENT
  Age: 64 Year
  Sex: Female

DRUGS (6)
  1. REFLEX [Suspect]
     Active Substance: MIRTAZAPINE
     Indication: Depression
     Dosage: 45 MILLIGRAM
     Route: 048
  2. REFLEX [Suspect]
     Active Substance: MIRTAZAPINE
     Indication: Panic disorder
  3. PAROXETINE [Suspect]
     Active Substance: PAROXETINE
     Indication: Depression
     Dosage: 50 MILLIGRAM
     Route: 048
  4. PAROXETINE [Suspect]
     Active Substance: PAROXETINE
     Indication: Panic disorder
  5. BLONANSERIN [Concomitant]
     Active Substance: BLONANSERIN
     Indication: Depression
     Dosage: 12 MILLIGRAM/DAY
     Route: 048
  6. BLONANSERIN [Concomitant]
     Active Substance: BLONANSERIN
     Indication: Panic disorder

REACTIONS (1)
  - Status epilepticus [Recovering/Resolving]
